FAERS Safety Report 12735946 (Version 2)
Quarter: 2017Q2

REPORT INFORMATION
  Report Type: Report from Study
  Country: None (occurrence: US)
  Receive Date: 20160912
  Receipt Date: 20170504
  Transmission Date: 20170830
  Serious: Yes (Hospitalization, Other)
  Sender: FDA-Public Use
  Company Number: US-ABBVIE-16K-163-1576489-00

PATIENT
  Age: 47 Year
  Sex: Male

DRUGS (7)
  1. HUMIRA [Suspect]
     Active Substance: ADALIMUMAB
     Route: 058
  2. HUMIRA [Suspect]
     Active Substance: ADALIMUMAB
     Dosage: UNKNOWN LOADING DOSING
     Route: 058
     Dates: start: 201605, end: 201605
  3. METHOTREXATE. [Suspect]
     Active Substance: METHOTREXATE
     Route: 065
     Dates: start: 201607
  4. METHOTREXATE. [Suspect]
     Active Substance: METHOTREXATE
     Indication: CROHN^S DISEASE
     Route: 065
     Dates: start: 201510, end: 201603
  5. METHOTREXATE. [Suspect]
     Active Substance: METHOTREXATE
     Route: 065
     Dates: start: 201605, end: 201607
  6. HUMIRA [Suspect]
     Active Substance: ADALIMUMAB
     Indication: CROHN^S DISEASE
     Route: 058
     Dates: start: 20151016, end: 201603
  7. HUMIRA [Suspect]
     Active Substance: ADALIMUMAB
     Route: 058
     Dates: start: 201606, end: 2016

REACTIONS (14)
  - Drug ineffective [Not Recovered/Not Resolved]
  - Fatigue [Unknown]
  - Viral upper respiratory tract infection [Unknown]
  - Crohn^s disease [Unknown]
  - Hypersensitivity [Unknown]
  - Faecaluria [Unknown]
  - Large intestine perforation [Unknown]
  - Weight decreased [Unknown]
  - Wound abscess [Unknown]
  - Infection [Unknown]
  - Fatigue [Recovered/Resolved]
  - Incision site infection [Recovered/Resolved]
  - Intestinal fistula [Unknown]
  - Hepatic enzyme increased [Unknown]

NARRATIVE: CASE EVENT DATE: 2015
